FAERS Safety Report 12717586 (Version 1)
Quarter: 2016Q3

REPORT INFORMATION
  Report Type: Spontaneous
  Country: GB (occurrence: GB)
  Receive Date: 20160906
  Receipt Date: 20160906
  Transmission Date: 20161109
  Serious: Yes (Other)
  Sender: FDA-Public Use
  Company Number: GB-BAYER-2016-171454

PATIENT
  Sex: Female

DRUGS (1)
  1. MIRENA [Suspect]
     Active Substance: LEVONORGESTREL
     Indication: CONTRACEPTION
     Dosage: 20 MCG/24HR, CONT
     Route: 015
     Dates: start: 201508, end: 201607

REACTIONS (23)
  - Back pain [Recovering/Resolving]
  - Menorrhagia [Recovering/Resolving]
  - Metrorrhagia [Recovering/Resolving]
  - Headache [Not Recovered/Not Resolved]
  - Joint swelling [Not Recovered/Not Resolved]
  - Fatigue [Recovering/Resolving]
  - Groin pain [Recovering/Resolving]
  - Abdominal distension [Not Recovered/Not Resolved]
  - Abnormal weight gain [Recovering/Resolving]
  - Hair texture abnormal [Recovering/Resolving]
  - Nausea [Recovering/Resolving]
  - Vulvovaginal candidiasis [Recovering/Resolving]
  - Pain in extremity [Recovering/Resolving]
  - Mood swings [Not Recovered/Not Resolved]
  - Urinary tract infection [Recovering/Resolving]
  - Depression [Not Recovered/Not Resolved]
  - Irritability [Recovering/Resolving]
  - Acne [Recovering/Resolving]
  - Anxiety [Not Recovered/Not Resolved]
  - Peripheral swelling [Not Recovered/Not Resolved]
  - Tearfulness [Recovering/Resolving]
  - Anaemia [Not Recovered/Not Resolved]
  - Nervousness [Recovering/Resolving]
